FAERS Safety Report 4376068-8 (Version None)
Quarter: 2004Q2

REPORT INFORMATION
  Report Type: 
  Country: None (occurrence: None)
  Receive Date: 20040611
  Receipt Date: 20031015
  Transmission Date: 20050107
  Serious: Yes (Hospitalization)
  Sender: FDA-Public Use
  Company Number: CA-BRISTOL-MYERS SQUIBB COMPANY-12411955

PATIENT
  Age: 64 Year
  Sex: Male
  Weight: 81 kg

DRUGS (4)
  1. BMS188667 [Suspect]
     Indication: RHEUMATOID ARTHRITIS
     Route: 042
     Dates: start: 20020618
  2. METHOTREXATE [Suspect]
     Dates: start: 19970728
  3. PREDNISONE [Suspect]
     Route: 048
     Dates: start: 19970728
  4. PLAQUENIL [Concomitant]
     Dates: start: 20030807

REACTIONS (1)
  - PNEUMONIA HAEMOPHILUS [None]
